FAERS Safety Report 15673948 (Version 3)
Quarter: 2018Q4

REPORT INFORMATION
  Report Type: Spontaneous
  Country: US (occurrence: US)
  Receive Date: 20181129
  Receipt Date: 20181206
  Transmission Date: 20190205
  Serious: Yes (Hospitalization, Other)
  Sender: FDA-Public Use
  Company Number: US-AMGEN-USASP2018170426

PATIENT
  Age: 93 Year
  Sex: Female

DRUGS (1)
  1. ENBREL [Suspect]
     Active Substance: ETANERCEPT
     Indication: RHEUMATOID ARTHRITIS
     Dosage: 50 MG, QWK
     Route: 065
     Dates: start: 2015

REACTIONS (9)
  - Hospitalisation [Unknown]
  - Gait disturbance [Unknown]
  - Malaise [Unknown]
  - Impaired healing [Unknown]
  - Asthenia [Unknown]
  - Product dose omission [Unknown]
  - Mobility decreased [Unknown]
  - Limb injury [Unknown]
  - Feeding disorder [Unknown]
